FAERS Safety Report 20357309 (Version 1)
Quarter: 2022Q1

REPORT INFORMATION
  Report Type: Spontaneous
  Country: US (occurrence: US)
  Receive Date: 20220120
  Receipt Date: 20220120
  Transmission Date: 20220423
  Serious: No
  Sender: FDA-Public Use
  Company Number: US-PFIZER INC-202101440422

PATIENT
  Age: 47 Year
  Sex: Female

DRUGS (3)
  1. RELPAX [Suspect]
     Active Substance: ELETRIPTAN HYDROBROMIDE
     Indication: Migraine
     Dosage: UNK
  2. ELMIRON [Concomitant]
     Active Substance: PENTOSAN POLYSULFATE SODIUM
     Indication: Cystitis interstitial
     Dosage: UNK
  3. NORTRIPTYLINE HYDROCHLORIDE [Concomitant]
     Active Substance: NORTRIPTYLINE HYDROCHLORIDE
     Dosage: 75 MG

REACTIONS (7)
  - Product dose omission issue [Unknown]
  - Migraine [Unknown]
  - Vision blurred [Unknown]
  - Ocular discomfort [Unknown]
  - Fatigue [Unknown]
  - Panic reaction [Unknown]
  - Illness [Unknown]
